FAERS Safety Report 17289983 (Version 1)
Quarter: 2020Q1

REPORT INFORMATION
  Report Type: Spontaneous
  Country: FR (occurrence: FR)
  Receive Date: 20200120
  Receipt Date: 20200120
  Transmission Date: 20200409
  Serious: Yes (Other)
  Sender: FDA-Public Use
  Company Number: FR-FRESENIUS KABI-FK202000582

PATIENT
  Age: 49 Year
  Sex: Female

DRUGS (7)
  1. OXALIPLATIN (MANUFACTURER UNKNOWN) [Suspect]
     Active Substance: OXALIPLATIN
     Indication: ADENOCARCINOMA OF COLON
     Route: 065
  2. ONDANSETRON [Concomitant]
     Active Substance: ONDANSETRON
     Indication: PREMEDICATION
     Route: 065
  3. BEVACIZUMAB. [Concomitant]
     Active Substance: BEVACIZUMAB
     Indication: ADENOCARCINOMA OF COLON
     Route: 065
  4. IRINOTECAN [Concomitant]
     Active Substance: IRINOTECAN
     Indication: ADENOCARCINOMA OF COLON
     Route: 065
  5. LEUCOVORIN FOR INJECTION (MANUFACTURER UNKNOWN) [Suspect]
     Active Substance: LEUCOVORIN CALCIUM
     Indication: ADENOCARCINOMA OF COLON
     Route: 065
  6. METHYLPREDNISOLONE (MANUFACTURER UNKNOWN) [Suspect]
     Active Substance: METHYLPREDNISOLONE
     Indication: ADENOCARCINOMA OF COLON
     Route: 065
  7. METHYLPREDNISOLONE (MANUFACTURER UNKNOWN) [Suspect]
     Active Substance: METHYLPREDNISOLONE
     Indication: PREMEDICATION

REACTIONS (1)
  - Thrombocytopenia [Recovered/Resolved]

NARRATIVE: CASE EVENT DATE: 201102
